FAERS Safety Report 24731680 (Version 2)
Quarter: 2024Q4

REPORT INFORMATION
  Report Type: Report from Study
  Country: US (occurrence: US)
  Receive Date: 20241213
  Receipt Date: 20241223
  Transmission Date: 20250115
  Serious: Yes (Hospitalization)
  Sender: ALKERMES
  Company Number: US-ALKERMES INC.-ALK-2024-003094

PATIENT
  Age: 48 Year

DRUGS (8)
  1. BUPRENORPHINE [Suspect]
     Active Substance: BUPRENORPHINE
     Indication: Drug dependence
     Dosage: 380 MILLIGRAM, Q3WK (WEEKS 0,3 + 6)
     Route: 030
     Dates: start: 20241004, end: 20241119
  2. INVESTIGATIONAL PRODUCT [Suspect]
     Active Substance: INVESTIGATIONAL PRODUCT
     Indication: Drug dependence
     Dosage: 380 MILLIGRAM, Q3WK (WEEKS 0,3 + 6)
     Route: 030
     Dates: start: 20241004, end: 20241119
  3. VIVITROL [Suspect]
     Active Substance: NALTREXONE
     Indication: Drug dependence
     Dosage: 380 MILLIGRAM, Q3WK (WEEKS 0,3 + 6)
     Route: 030
     Dates: start: 20241004, end: 20241119
  4. VIVITROL [Suspect]
     Active Substance: NALTREXONE
     Indication: Drug dependence
     Dosage: 380 MILLIGRAM, Q3WK (WEEKS 0,3 + 6)
     Route: 030
     Dates: start: 20241004, end: 20241119
  5. BUPRENORPHINE [Suspect]
     Active Substance: BUPRENORPHINE
     Dosage: 300 MILLIGRAM, Q4WK, (WEEK 0,4)
     Route: 058
     Dates: start: 20241008, end: 20241105
  6. INVESTIGATIONAL PRODUCT [Suspect]
     Active Substance: INVESTIGATIONAL PRODUCT
     Dosage: 300 MILLIGRAM, Q4WK, (WEEK 0,4)
     Route: 058
     Dates: start: 20241008, end: 20241105
  7. VIVITROL [Suspect]
     Active Substance: NALTREXONE
     Dosage: 300 MILLIGRAM, Q4WK, (WEEK 0,4)
     Route: 058
     Dates: start: 20241008, end: 20241105
  8. VIVITROL [Suspect]
     Active Substance: NALTREXONE
     Dosage: 300 MILLIGRAM, Q4WK, (WEEK 0,4)
     Route: 058
     Dates: start: 20241008, end: 20241105

REACTIONS (1)
  - Mental disorder [Recovering/Resolving]

NARRATIVE: CASE EVENT DATE: 20241126
